FAERS Safety Report 9056760 (Version 6)
Quarter: 2014Q2

REPORT INFORMATION
  Report Type: Report from Study
  Country: US (occurrence: US)
  Receive Date: 20130201
  Receipt Date: 20140601
  Transmission Date: 20141212
  Serious: Yes (Other)
  Sender: FDA-Public Use
  Company Number: US-VERTEX PHARMACEUTICALS INC.-2013-001230

PATIENT
  Sex: Male
  Weight: 97.51 kg

DRUGS (8)
  1. VX-950 (TELAPREVIR) [Suspect]
     Indication: HEPATITIS C
     Dosage: 750 MG, TID
     Route: 048
     Dates: start: 201301, end: 201304
  2. RIBASPHERE [Suspect]
     Indication: HEPATITIS C
     Dosage: 2 TABS AM, 3 TABS PM
     Route: 048
     Dates: start: 201301, end: 201306
  3. PEGASYS [Suspect]
     Indication: HEPATITIS C
     Dosage: 180 ?G, QW
     Route: 058
     Dates: start: 201301, end: 201306
  4. SOMA [Concomitant]
     Dosage: UNK, QD
  5. LORTAB [Concomitant]
     Dosage: UNK, PRN
  6. MULTIVITAMIN [Concomitant]
     Dosage: UNK, QD
  7. PROZAC [Concomitant]
     Indication: DEPRESSION
     Route: 048
  8. MARIJUANA [Concomitant]
     Indication: PAIN

REACTIONS (16)
  - Malignant melanoma [Not Recovered/Not Resolved]
  - Laceration [Not Recovered/Not Resolved]
  - Influenza like illness [Unknown]
  - Disturbance in attention [Unknown]
  - Dyspepsia [Unknown]
  - Injection site erythema [Unknown]
  - Productive cough [Unknown]
  - Weight decreased [Not Recovered/Not Resolved]
  - Fatigue [Recovered/Resolved]
  - Rash pruritic [Recovered/Resolved]
  - Genital rash [Unknown]
  - Scab [Unknown]
  - Anorectal discomfort [Recovered/Resolved]
  - Diarrhoea [Unknown]
  - Nausea [Recovered/Resolved]
  - Drug ineffective [Not Recovered/Not Resolved]
